FAERS Safety Report 4590915-6 (Version None)
Quarter: 2005Q1

REPORT INFORMATION
  Report Type: 
  Country: None (occurrence: None)
  Receive Date: 20050225
  Receipt Date: 20050215
  Transmission Date: 20050727
  Serious: Yes (Other)
  Sender: FDA-Public Use
  Company Number: NSADSS2001028912

PATIENT
  Sex: Female
  Weight: 53.52 kg

DRUGS (4)
  1. REMICADE [Suspect]
     Route: 041
     Dates: start: 20010723
  2. REMICADE [Suspect]
     Indication: RHEUMATOID ARTHRITIS
     Route: 041
     Dates: start: 20010723
  3. PLAQUENIL [Concomitant]
  4. METHOTREXATE [Concomitant]

REACTIONS (3)
  - BLINDNESS UNILATERAL [None]
  - HYPOAESTHESIA ORAL [None]
  - MULTIPLE SCLEROSIS [None]
